FAERS Safety Report 15006286 (Version 1)
Quarter: 2018Q2

REPORT INFORMATION
  Report Type: Spontaneous
  Country: US (occurrence: US)
  Receive Date: 20180521
  Receipt Date: 20180521
  Transmission Date: 20180711
  Serious: Yes (Hospitalization)
  Sender: FDA-Public Use
  Company Number: None

PATIENT
  Age: 65 Year
  Sex: Male
  Weight: 66.5 kg

DRUGS (9)
  1. HEPARIN [Concomitant]
     Active Substance: HEPARIN SODIUM
  2. FENTANYL. [Concomitant]
     Active Substance: FENTANYL
  3. LIDOCAINE. [Concomitant]
     Active Substance: LIDOCAINE
  4. VERSED [Concomitant]
     Active Substance: MIDAZOLAM HYDROCHLORIDE
  5. LISINOPRIL. [Concomitant]
     Active Substance: LISINOPRIL
  6. ROCALTROL [Concomitant]
     Active Substance: CALCITRIOL
  7. VISIPAQUE [Suspect]
     Active Substance: IODIXANOL
     Indication: PERCUTANEOUS CORONARY INTERVENTION
  8. COREG [Concomitant]
     Active Substance: CARVEDILOL
  9. ASA [Concomitant]
     Active Substance: ASPIRIN

REACTIONS (6)
  - Respiratory failure [None]
  - Anaphylactic reaction [None]
  - Pleural effusion [None]
  - Fluid overload [None]
  - Contrast media reaction [None]
  - Cardiogenic shock [None]

NARRATIVE: CASE EVENT DATE: 20180109
